FAERS Safety Report 13953834 (Version 8)
Quarter: 2017Q4

REPORT INFORMATION
  Report Type: Report from Study
  Country: CO (occurrence: CO)
  Receive Date: 20170911
  Receipt Date: 20171113
  Transmission Date: 20180320
  Serious: Yes (Death, Hospitalization)
  Sender: FDA-Public Use
  Company Number: PHHY2017CO133357

PATIENT
  Age: 81 Year
  Sex: Male
  Weight: 52 kg

DRUGS (5)
  1. ENTRESTO [Suspect]
     Active Substance: SACUBITRIL\VALSARTAN
     Indication: CARDIAC FAILURE
     Dosage: 50 MG (24MG OF SACUBITRIL AND 26MG OF VALSARTAN), Q12H
     Route: 048
     Dates: start: 20170505
  2. CARVEDILOL. [Suspect]
     Active Substance: CARVEDILOL
     Indication: PRODUCT USED FOR UNKNOWN INDICATION
     Route: 065
  3. LOSARTAN. [Suspect]
     Active Substance: LOSARTAN
     Indication: PRODUCT USED FOR UNKNOWN INDICATION
     Route: 065
  4. FUROSEMIDE. [Concomitant]
     Active Substance: FUROSEMIDE
     Indication: PRODUCT USED FOR UNKNOWN INDICATION
     Route: 065
  5. LANITOP [Concomitant]
     Active Substance: METILDIGOXIN
     Indication: PRODUCT USED FOR UNKNOWN INDICATION
     Dosage: 8 DF, QD
     Route: 065

REACTIONS (16)
  - Depressed mood [Fatal]
  - Haemoglobin decreased [Fatal]
  - Device occlusion [Unknown]
  - Fluid retention [Fatal]
  - Influenza [Unknown]
  - Pneumonia [Fatal]
  - Oedema peripheral [Fatal]
  - Diet refusal [Fatal]
  - Renal failure [Fatal]
  - Anuria [Fatal]
  - Gait inability [Fatal]
  - Decreased appetite [Fatal]
  - Dysuria [Fatal]
  - Yellow skin [Fatal]
  - Urine odour abnormal [Fatal]
  - Urine output decreased [Fatal]

NARRATIVE: CASE EVENT DATE: 20170807
